FAERS Safety Report 4774750-1 (Version None)
Quarter: 2005Q3

REPORT INFORMATION
  Report Type: 
  Country: None (occurrence: None)
  Receive Date: 20050921
  Receipt Date: 20050913
  Transmission Date: 20060218
  Serious: Yes (Other)
  Sender: FDA-Public Use
  Company Number: GB-GLAXOSMITHKLINE-B0393779A

PATIENT
  Age: 75 Year
  Sex: Male
  Weight: 74 kg

DRUGS (7)
  1. DUTASTERIDE [Suspect]
     Indication: HYPERTENSION
     Dosage: 500MCG UNKNOWN
     Route: 048
     Dates: start: 20050503, end: 20050906
  2. ASPIRIN [Concomitant]
     Indication: HEART DISEASE CONGENITAL
     Dosage: 75MG PER DAY
     Route: 048
     Dates: start: 19981020
  3. ATORVASTATIN [Concomitant]
     Dosage: 40MG PER DAY
     Route: 048
     Dates: start: 20040602
  4. CANDESARTAN [Concomitant]
     Dosage: 4MG PER DAY
     Route: 048
     Dates: start: 20040826
  5. TAMSULOSIN [Concomitant]
     Route: 048
     Dates: start: 20041108
  6. NAPROXEN [Concomitant]
     Route: 065
  7. OMEPRAZOLE [Concomitant]
     Route: 065

REACTIONS (2)
  - HEPATOTOXICITY [None]
  - LIVER FUNCTION TEST ABNORMAL [None]
